FAERS Safety Report 8927757 (Version 1)
Quarter: 2012Q4

REPORT INFORMATION
  Report Type: 
  Country: IL (occurrence: IL)
  Receive Date: 20121127
  Receipt Date: 20121127
  Transmission Date: 20130627
  Serious: Yes (Other)
  Sender: FDA-Public Use
  Company Number: IL-JNJFOC-20120909191

PATIENT
  Age: 72 Year
  Sex: Female
  Weight: 75 kg

DRUGS (5)
  1. SIMPONI [Suspect]
     Indication: PRODUCT USED FOR UNKNOWN INDICATION
     Route: 058
     Dates: start: 20120821
  2. CORTISONE [Concomitant]
     Route: 065
  3. FORTEO [Concomitant]
     Route: 065
  4. ANTI HYPERTENSIVE DRUG (NOS) [Concomitant]
     Route: 065
  5. ANTICOAGULANTS [Concomitant]
     Route: 065

REACTIONS (2)
  - Pruritus generalised [Not Recovered/Not Resolved]
  - Rash generalised [Not Recovered/Not Resolved]
